FAERS Safety Report 15546959 (Version 1)
Quarter: 2018Q4

REPORT INFORMATION
  Report Type: Spontaneous
  Country: US (occurrence: US)
  Receive Date: 20181023
  Receipt Date: 20181023
  Transmission Date: 20190205
  Serious: Yes (Disabling)
  Sender: FDA-Public Use
  Company Number: None

PATIENT
  Age: 55 Year
  Sex: Male
  Weight: 94.5 kg

DRUGS (1)
  1. NEW U LIFE SOMADERM GEL [Suspect]
     Active Substance: HOMEOPATHICS
     Indication: PRODUCT USED FOR UNKNOWN INDICATION
     Dosage: ?          QUANTITY:1 GEL;?
     Route: 061
     Dates: start: 20180928, end: 20181012

REACTIONS (5)
  - Product complaint [None]
  - Headache [None]
  - Insomnia [None]
  - Arthralgia [None]
  - Nausea [None]

NARRATIVE: CASE EVENT DATE: 20180925
